FAERS Safety Report 21366087 (Version 1)
Quarter: 2022Q3

REPORT INFORMATION
  Report Type: Spontaneous
  Country: CN (occurrence: CN)
  Receive Date: 20220922
  Receipt Date: 20220922
  Transmission Date: 20221026
  Serious: Yes (Hospitalization, Disabling)
  Sender: FDA-Public Use
  Company Number: CN-009507513-2209CHN007478

PATIENT
  Age: 36 Year
  Sex: Male
  Weight: 59 kg

DRUGS (4)
  1. KEYTRUDA [Suspect]
     Active Substance: PEMBROLIZUMAB
     Indication: Gastric cancer
     Dosage: 200 MILLIGRAMS (MG), ONE TIME IN ONE DAY
     Route: 041
     Dates: start: 20220818, end: 20220818
  2. CAPECITABINE [Suspect]
     Active Substance: CAPECITABINE
     Indication: Gastric cancer
     Dosage: 1.5 GRAMS (G), TWICE A DAY (BID)
     Route: 048
     Dates: start: 20220819, end: 20220901
  3. OXALIPLATIN [Suspect]
     Active Substance: OXALIPLATIN
     Indication: Gastric cancer
     Dosage: 200 MILLIGRAMS (MG), ONE TIME IN ONE DAY
     Route: 041
     Dates: start: 20220819, end: 20220819
  4. TRASTUZUMAB [Suspect]
     Active Substance: TRASTUZUMAB
     Indication: Gastric cancer
     Dosage: 360 MILLIGRAMS (MG), ONE TIME IN ONE DAY
     Route: 041
     Dates: start: 20220819, end: 20220819

REACTIONS (2)
  - Platelet count decreased [Recovering/Resolving]
  - Product use in unapproved indication [Unknown]

NARRATIVE: CASE EVENT DATE: 20220908
